FAERS Safety Report 21925906 (Version 1)
Quarter: 2023Q1

REPORT INFORMATION
  Report Type: Spontaneous
  Country: US (occurrence: US)
  Receive Date: 20230130
  Receipt Date: 20230130
  Transmission Date: 20230417
  Serious: No
  Sender: FDA-Public Use
  Company Number: US-SA-SAC20230127000999

PATIENT
  Sex: Male

DRUGS (1)
  1. DUPIXENT [Suspect]
     Active Substance: DUPILUMAB
     Indication: Eosinophilic oesophagitis
     Dosage: 300 MG, QW
     Route: 058
     Dates: start: 202212

REACTIONS (5)
  - Scratch [Recovered/Resolved]
  - Skin discolouration [Unknown]
  - Rash erythematous [Recovered/Resolved]
  - Skin swelling [Recovered/Resolved]
  - Rash pruritic [Recovered/Resolved]
